FAERS Safety Report 6773922-4 (Version None)
Quarter: 2010Q2

REPORT INFORMATION
  Report Type: 
  Country: None (occurrence: None)
  Receive Date: 20100616
  Receipt Date: 20100616
  Transmission Date: 20101027
  Serious: No
  Sender: FDA-Public Use
  Company Number: None

PATIENT
  Sex: Male
  Weight: 73.9363 kg

DRUGS (2)
  1. LANSOPRAZOLE [Suspect]
     Indication: GASTROOESOPHAGEAL REFLUX DISEASE
     Dosage: 30MG 1 PO QD
     Route: 048
  2. LANSOPRAZOLE [Suspect]
     Dosage: 30MG 1 PO BID
     Route: 048

REACTIONS (2)
  - DYSPEPSIA [None]
  - PRODUCT SUBSTITUTION ISSUE [None]
